FAERS Safety Report 22035701 (Version 1)
Quarter: 2023Q1

REPORT INFORMATION
  Report Type: Spontaneous
  Country: US (occurrence: None)
  Receive Date: 20230223
  Receipt Date: 20230223
  Transmission Date: 20230417
  Serious: Yes (Life-Threatening, Hospitalization, Disabling)
  Sender: FDA-Public Use
  Company Number: None

PATIENT
  Age: 50 Year
  Sex: Male
  Weight: 104.78 kg

DRUGS (8)
  1. HERBALS\MITRAGYNINE [Suspect]
     Active Substance: HERBALS\MITRAGYNINE
     Indication: Anxiety
     Dates: start: 20230129, end: 20230129
  2. BUSPIRONE [Concomitant]
     Active Substance: BUSPIRONE HYDROCHLORIDE
  3. REMERON [Concomitant]
     Active Substance: MIRTAZAPINE
  4. SERTRALINE [Concomitant]
     Active Substance: SERTRALINE HYDROCHLORIDE
  5. SERPOQUEL [Concomitant]
  6. GABAPENTIN [Concomitant]
     Active Substance: GABAPENTIN
  7. METOPROLOL [Concomitant]
     Active Substance: METOPROLOL
  8. THC GUMMY [Concomitant]

REACTIONS (11)
  - Serotonin syndrome [None]
  - Product label issue [None]
  - Disorientation [None]
  - Vomiting [None]
  - Aspiration [None]
  - Dyspnoea [None]
  - Oxygen saturation decreased [None]
  - Cerebrovascular accident [None]
  - Pneumonia aspiration [None]
  - Coma [None]
  - Contraindicated product administered [None]

NARRATIVE: CASE EVENT DATE: 20230129
